FAERS Safety Report 5063899-4 (Version None)
Quarter: 2006Q3

REPORT INFORMATION
  Report Type: 
  Country: None (occurrence: None)
  Receive Date: 20060703
  Receipt Date: 20060314
  Transmission Date: 20061208
  Serious: Yes (Death)
  Sender: FDA-Public Use
  Company Number: 06P-163-0328008-00

PATIENT
  Age: 65 Year
  Sex: Male

DRUGS (1)
  1. GENGRAF [Suspect]
     Indication: TRANSPLANT
     Dosage: 25 MG, 3 TABS, 2 IN 1 D

REACTIONS (1)
  - DEATH [None]
